FAERS Safety Report 8182208-5 (Version None)
Quarter: 2012Q1

REPORT INFORMATION
  Report Type: 
  Country: None (occurrence: None)
  Receive Date: 20120302
  Receipt Date: 20120223
  Transmission Date: 20120608
  Serious: Yes (Disabling)
  Sender: FDA-Public Use
  Company Number: PHHY2012GB015565

PATIENT
  Age: 75 Year
  Sex: Female
  Weight: 69.854 kg

DRUGS (32)
  1. CLARITHROMYCIN [Suspect]
     Dosage: UNK
     Dates: start: 20120213
  2. AMLODIPINE [Concomitant]
     Dosage: UNK
     Dates: start: 20111031, end: 20111128
  3. ATORVASTATIN [Concomitant]
     Dosage: UNK
     Dates: start: 20111207
  4. BUPRENORPHINE [Concomitant]
     Dosage: UNK
     Dates: start: 20111207
  5. ACETAMINOPHEN [Concomitant]
     Dosage: UNK
     Dates: start: 20120104, end: 20120118
  6. FUROSEMIDE [Concomitant]
     Dosage: UNK
     Dates: start: 20111130
  7. GLIMEPIRIDE [Concomitant]
     Dosage: UNK
     Dates: start: 20111223, end: 20120122
  8. ACETAMINOPHEN [Concomitant]
     Dosage: UNK
     Dates: start: 20111031, end: 20111117
  9. AMITRIPTYLINE HCL [Concomitant]
     Dosage: UNK
     Dates: start: 20111207
  10. BUPRENORPHINE [Concomitant]
     Dosage: UNK
     Dates: start: 20111031, end: 20111128
  11. HYOSCINE BUTYLBROMIDE [Concomitant]
     Dosage: UNK
     Dates: start: 20120104, end: 20120118
  12. LANSOPRAZOLE [Concomitant]
     Dosage: UNK
     Dates: start: 20111207
  13. METFORMIN HCL [Concomitant]
     Dosage: UNK
     Dates: start: 20111031, end: 20111128
  14. METFORMIN HCL [Concomitant]
     Dosage: UNK
     Dates: start: 20111207, end: 20120104
  15. ATORVASTATIN [Concomitant]
     Dosage: UNK
     Dates: start: 20111031, end: 20111128
  16. HYOSCINE BUTYLBROMIDE [Concomitant]
     Dosage: UNK
     Dates: start: 20120201
  17. MOVELAT [Concomitant]
     Dosage: UNK
     Dates: start: 20111207
  18. RAMIPRIL [Concomitant]
     Dosage: UNK
     Dates: start: 20111223
  19. LANSOPRAZOLE [Concomitant]
     Dosage: UNK
     Dates: start: 20111031, end: 20111128
  20. AMLODIPINE [Concomitant]
     Dosage: UNK
     Dates: start: 20111207, end: 20120104
  21. FERROUS SULFATE TAB [Concomitant]
     Dosage: UNK
     Dates: start: 20111031, end: 20111128
  22. FERROUS SULFATE TAB [Concomitant]
     Dosage: UNK
     Dates: start: 20111207
  23. HYOSCINE BUTYLBROMIDE [Concomitant]
     Dosage: UNK
     Dates: start: 20111031, end: 20111114
  24. HYOSCINE BUTYLBROMIDE [Concomitant]
     Dosage: UNK
     Dates: start: 20111207, end: 20111221
  25. METFORMIN HCL [Concomitant]
     Dosage: UNK
     Dates: start: 20120111, end: 20120208
  26. ACETAMINOPHEN [Concomitant]
     Dosage: UNK
     Dates: start: 20120201
  27. QUININE SULFATE [Concomitant]
     Dosage: UNK
     Dates: start: 20111223
  28. SPIRONOLACTONE [Concomitant]
     Dosage: UNK
     Dates: start: 20111130
  29. AMITRIPTYLINE HCL [Concomitant]
     Dosage: UNK
     Dates: start: 20111031, end: 20111128
  30. MOVELAT [Concomitant]
     Dosage: UNK
     Dates: start: 20111031, end: 20111128
  31. ACETAMINOPHEN [Concomitant]
     Dosage: UNK
     Dates: start: 20111207, end: 20111221
  32. QUININE SULFATE [Concomitant]
     Dosage: UNK
     Dates: start: 20111031, end: 20111130

REACTIONS (2)
  - MALAISE [None]
  - HEADACHE [None]
